FAERS Safety Report 4282965-4 (Version None)
Quarter: 2004Q1

REPORT INFORMATION
  Report Type: 
  Country: None (occurrence: None)
  Receive Date: 20040130
  Receipt Date: 20040120
  Transmission Date: 20041129
  Serious: Yes (Other)
  Sender: FDA-Public Use
  Company Number: PHBS2004BR01014

PATIENT
  Age: 56 Year
  Sex: Female
  Weight: 52 kg

DRUGS (6)
  1. MELLERIL [Suspect]
     Indication: DEPRESSION
     Dosage: 50 MG, QHS
     Route: 048
  2. RIVOTRIL [Concomitant]
     Route: 065
  3. CARDIOL [Concomitant]
     Route: 065
  4. ADALVIDA [Concomitant]
     Route: 065
  5. CAPTOPRIL [Concomitant]
     Route: 065
  6. LIPITOR [Concomitant]
     Dosage: UNK, UNK
     Route: 065

REACTIONS (3)
  - BLOOD CREATININE INCREASED [None]
  - ERYTHEMA [None]
  - RENAL FUNCTION TEST ABNORMAL [None]
